FAERS Safety Report 9649505 (Version 2)
Quarter: 2014Q1

REPORT INFORMATION
  Report Type: Spontaneous
  Country: DE (occurrence: DE)
  Receive Date: 20131028
  Receipt Date: 20140110
  Transmission Date: 20141002
  Serious: Yes (Other)
  Sender: FDA-Public Use
  Company Number: PHHY2013DE120907

PATIENT
  Sex: Female

DRUGS (2)
  1. LEPONEX [Suspect]
     Indication: SCHIZOPHRENIA, PARANOID TYPE
     Dosage: 175 MG, QD
     Route: 048
     Dates: start: 20130621, end: 20131024
  2. L-THYROXIN [Concomitant]
     Indication: HYPOTHYROIDISM
     Dosage: 125 UG, QD
     Route: 048

REACTIONS (6)
  - Transaminases increased [Recovered/Resolved]
  - Thrombocytopenia [Unknown]
  - Blood lactate dehydrogenase increased [Unknown]
  - Granulocyte count increased [Unknown]
  - Lymphocyte count decreased [Unknown]
  - Platelet count decreased [Unknown]
